FAERS Safety Report 5760630-1 (Version None)
Quarter: 2008Q2

REPORT INFORMATION
  Report Type: 
  Country: None (occurrence: None)
  Receive Date: 20080602
  Receipt Date: 20080520
  Transmission Date: 20081010
  Serious: Yes (Hospitalization)
  Sender: FDA-Public Use
  Company Number: 163-21880-08040248

PATIENT
  Age: 50 Year
  Sex: Male

DRUGS (4)
  1. REVLIMID [Suspect]
     Indication: LEUKAEMIA PLASMACYTIC
     Dosage: 25 MG, 1 IN 1 D,ORAL;12.5 MG, 1 IN 2 D,ORAL
     Route: 048
     Dates: start: 20061018, end: 20080310
  2. REVLIMID [Suspect]
     Indication: MULTIPLE MYELOMA
     Dosage: 25 MG, 1 IN 1 D,ORAL;12.5 MG, 1 IN 2 D,ORAL
     Route: 048
     Dates: start: 20061018, end: 20080310
  3. REVLIMID [Suspect]
     Indication: LEUKAEMIA PLASMACYTIC
     Dosage: 25 MG, 1 IN 1 D,ORAL;12.5 MG, 1 IN 2 D,ORAL
     Route: 048
     Dates: start: 20080501
  4. REVLIMID [Suspect]
     Indication: MULTIPLE MYELOMA
     Dosage: 25 MG, 1 IN 1 D,ORAL;12.5 MG, 1 IN 2 D,ORAL
     Route: 048
     Dates: start: 20080501

REACTIONS (2)
  - DISEASE PROGRESSION [None]
  - MENINGITIS [None]
